FAERS Safety Report 20637231 (Version 1)
Quarter: 2022Q1

REPORT INFORMATION
  Report Type: Spontaneous
  Country: SG (occurrence: None)
  Receive Date: 20220325
  Receipt Date: 20220325
  Transmission Date: 20220424
  Serious: Yes (Other)
  Sender: FDA-Public Use
  Company Number: SG-ROCHE-3057861

PATIENT

DRUGS (1)
  1. ROZLYTREK [Suspect]
     Active Substance: ENTRECTINIB
     Indication: Non-small cell lung cancer
     Route: 065

REACTIONS (2)
  - Cerebrovascular accident [Recovered/Resolved]
  - Facial paresis [Recovered/Resolved]
